FAERS Safety Report 16711185 (Version 1)
Quarter: 2019Q3

REPORT INFORMATION
  Report Type: Spontaneous
  Country: CA (occurrence: CA)
  Receive Date: 20190816
  Receipt Date: 20190816
  Transmission Date: 20191004
  Serious: Yes (Other)
  Sender: FDA-Public Use
  Company Number: CA-SHIRE-CA201926536

PATIENT

DRUGS (7)
  1. MEZAVANT [Suspect]
     Active Substance: MESALAMINE
     Dosage: 3.2 GRAM
     Route: 065
  2. AMLODIPINE [Concomitant]
     Active Substance: AMLODIPINE BESYLATE
     Indication: HYPERTENSION
  3. AZATHIOPRINE. [Suspect]
     Active Substance: AZATHIOPRINE
     Indication: COLITIS ULCERATIVE
     Dosage: 200 MILLIGRAM
     Route: 065
  4. MEZAVANT [Suspect]
     Active Substance: MESALAMINE
     Indication: COLITIS ULCERATIVE
     Dosage: 4.8 GRAM
     Route: 065
  5. BISOPROLOL [Concomitant]
     Active Substance: BISOPROLOL
     Indication: HYPERTENSION
  6. HYDROCHLOROTHIAZIDE. [Concomitant]
     Active Substance: HYDROCHLOROTHIAZIDE
     Indication: HYPERTENSION
  7. PREDNISONE. [Concomitant]
     Active Substance: PREDNISONE
     Indication: COLITIS ULCERATIVE

REACTIONS (6)
  - Asthenia [Recovering/Resolving]
  - Muscle spasms [Recovering/Resolving]
  - Frequent bowel movements [Recovering/Resolving]
  - Colitis ulcerative [Recovering/Resolving]
  - Rectal haemorrhage [Recovering/Resolving]
  - Arthralgia [Recovering/Resolving]
